FAERS Safety Report 6527296-4 (Version None)
Quarter: 2010Q1

REPORT INFORMATION
  Report Type: 
  Country: None (occurrence: None)
  Receive Date: 20100105
  Receipt Date: 20090203
  Transmission Date: 20100710
  Serious: No
  Sender: FDA-Public Use
  Company Number: US-TYCO HEALTHCARE/MALLINCKRODT-T200900185

PATIENT
  Sex: Male
  Weight: 81.633 kg

DRUGS (1)
  1. OPTIMARK [Suspect]
     Indication: NUCLEAR MAGNETIC RESONANCE IMAGING
     Dosage: 16 ML, SINGLE
     Dates: start: 20090202, end: 20090202

REACTIONS (3)
  - ORAL PRURITUS [None]
  - PRURITUS [None]
  - THROAT IRRITATION [None]
